FAERS Safety Report 12498751 (Version 1)
Quarter: 2016Q2

REPORT INFORMATION
  Report Type: Spontaneous
  Country: US (occurrence: None)
  Receive Date: 20160624
  Receipt Date: 20160624
  Transmission Date: 20160815
  Serious: Yes (Other)
  Sender: FDA-Public Use
  Company Number: None

PATIENT
  Age: 48 Year
  Sex: Female
  Weight: 56.7 kg

DRUGS (13)
  1. MULTI-VITAMIN [Concomitant]
     Active Substance: .ALPHA.-TOCOPHEROL ACETATE, DL-\ASCORBIC ACID\CYANOCOBALAMIN\FLUORIDE ION\FOLIC ACID\NIACIN\PYRIDOXINE\RIBOFLAVIN\THIAMINE\VITAMIN A\VITAMIN D
  2. PROBIOTICS [Concomitant]
     Active Substance: PROBIOTICS NOS
  3. BONE RENEWAL [Concomitant]
  4. MAGNESIUM [Concomitant]
     Active Substance: MAGNESIUM
  5. ENZYMES [Concomitant]
  6. B-VITAMINS [Concomitant]
  7. MINERALS [Concomitant]
     Active Substance: MINERALS
  8. GABAPENTIN. [Concomitant]
     Active Substance: GABAPENTIN
  9. MECLIZINE [Concomitant]
     Active Substance: MECLIZINE HYDROCHLORIDE
  10. LYRICA [Suspect]
     Active Substance: PREGABALIN
     Indication: NEURALGIA
     Dosage: 60 CAPSULES TWICE A DAY
     Route: 048
     Dates: start: 20150921, end: 20150922
  11. PERCOCET [Concomitant]
     Active Substance: ACETAMINOPHEN\OXYCODONE HYDROCHLORIDE
  12. BUPROPION SR [Concomitant]
     Active Substance: BUPROPION
  13. PRILOSEC [Concomitant]
     Active Substance: OMEPRAZOLE MAGNESIUM

REACTIONS (4)
  - Fear [None]
  - Dyspnoea [None]
  - Sleep paralysis [None]
  - Middle insomnia [None]

NARRATIVE: CASE EVENT DATE: 20150921
